FAERS Safety Report 22284418 (Version 1)
Quarter: 2023Q2

REPORT INFORMATION
  Report Type: Spontaneous
  Country: MX (occurrence: MX)
  Receive Date: 20230504
  Receipt Date: 20230504
  Transmission Date: 20230721
  Serious: Yes (Other)
  Sender: FDA-Public Use
  Company Number: MX-PFIZER INC-PV202300078628

PATIENT
  Sex: Female

DRUGS (1)
  1. AROMASIN [Suspect]
     Active Substance: EXEMESTANE
     Indication: Lung neoplasm malignant
     Dosage: UNK

REACTIONS (5)
  - Second primary malignancy [Unknown]
  - Head and neck cancer [Unknown]
  - Depression [Unknown]
  - Off label use [Unknown]
  - Drug effective for unapproved indication [Unknown]
